FAERS Safety Report 4337964-0 (Version None)
Quarter: 2004Q2

REPORT INFORMATION
  Report Type: 
  Country: None (occurrence: None)
  Receive Date: 20040413
  Receipt Date: 20040224
  Transmission Date: 20050107
  Serious: Yes (Hospitalization, Disabling)
  Sender: FDA-Public Use
  Company Number: CM-MERCK-0402USA01755

PATIENT
  Age: 40 Year
  Sex: Male

DRUGS (1)
  1. STROMECTOL [Suspect]
     Route: 048
     Dates: start: 20040215, end: 20040215

REACTIONS (10)
  - ABASIA [None]
  - APHASIA [None]
  - ASTHENIA [None]
  - COMA [None]
  - DECUBITUS ULCER [None]
  - DEPRESSED LEVEL OF CONSCIOUSNESS [None]
  - GAIT DISTURBANCE [None]
  - HEADACHE [None]
  - URINARY INCONTINENCE [None]
  - WHITE BLOOD CELL COUNT DECREASED [None]
